FAERS Safety Report 13152302 (Version 1)
Quarter: 2017Q1

REPORT INFORMATION
  Report Type: Report from Study
  Country: US (occurrence: US)
  Receive Date: 20170125
  Receipt Date: 20170125
  Transmission Date: 20170428
  Serious: Yes (Hospitalization, Other)
  Sender: FDA-Public Use
  Company Number: US-GILEAD-2017-0254741

PATIENT
  Age: 79 Year
  Sex: Male

DRUGS (1)
  1. RANOLAZINE [Suspect]
     Active Substance: RANOLAZINE
     Indication: PRODUCT USED FOR UNKNOWN INDICATION
     Dosage: UNK
     Route: 048

REACTIONS (12)
  - Angina pectoris [Unknown]
  - Arterial occlusive disease [Unknown]
  - Cardiac assistance device user [Unknown]
  - Fall [Unknown]
  - Device occlusion [Unknown]
  - Stent placement [Unknown]
  - Dyspnoea [Unknown]
  - Myocardial infarction [Unknown]
  - Malaise [Unknown]
  - Chest pain [Unknown]
  - Cardiac disorder [Unknown]
  - Incorrect dosage administered [Unknown]
